FAERS Safety Report 5511353-5 (Version None)
Quarter: 2007Q4

REPORT INFORMATION
  Report Type: 
  Country: None (occurrence: None)
  Receive Date: 20071109
  Receipt Date: 20070912
  Transmission Date: 20080405
  Serious: No
  Sender: FDA-Public Use
  Company Number: A0681448A

PATIENT
  Age: 75 Year
  Sex: Male

DRUGS (10)
  1. ALTABAX [Suspect]
     Dosage: 1APP PER DAY
     Route: 061
     Dates: start: 20070905, end: 20070910
  2. PLAVIX [Concomitant]
  3. RANITIDINE [Concomitant]
  4. EZETIMIBE [Concomitant]
  5. TERAZOSIN HCL [Concomitant]
  6. TRIAMTERENE [Concomitant]
  7. METOPROLOL TARTRATE [Concomitant]
  8. NITROGLYCERIN [Concomitant]
  9. PRIMIDONE [Concomitant]
  10. INSULIN [Concomitant]

REACTIONS (2)
  - APPLICATION SITE PAPULES [None]
  - RASH PAPULAR [None]
